FAERS Safety Report 5219537-0 (Version None)
Quarter: 2007Q1

REPORT INFORMATION
  Report Type: 
  Country: None (occurrence: None)
  Receive Date: 20070124
  Receipt Date: 20070124
  Transmission Date: 20070707
  Serious: Yes (Other)
  Sender: FDA-Public Use
  Company Number: None

PATIENT
  Age: 72 Year
  Sex: Male
  Weight: 94.8018 kg

DRUGS (11)
  1. METOPROLOL TARTRATE [Suspect]
     Indication: BLOOD PRESSURE
     Dosage: 50 MG BID
     Dates: start: 19990101, end: 20060101
  2. AMITRIPTYLINE HCL [Concomitant]
  3. FOSINOPRIL NA [Concomitant]
  4. FUROSEMIDE [Concomitant]
  5. GLIPIZIDE [Concomitant]
  6. METOPROLOL TARTRATE [Concomitant]
  7. NITROGLYCERIN [Concomitant]
  8. PIROXICAM [Concomitant]
  9. RANITIDINE HCL [Concomitant]
  10. SIMVASTATIN [Concomitant]
  11. OTC ECASA [Concomitant]

REACTIONS (1)
  - NODAL RHYTHM [None]
